FAERS Safety Report 24003939 (Version 1)
Quarter: 2024Q2

REPORT INFORMATION
  Report Type: Spontaneous
  Country: DE (occurrence: DE)
  Receive Date: 20240624
  Receipt Date: 20240624
  Transmission Date: 20240716
  Serious: Yes (Hospitalization, Other)
  Sender: FDA-Public Use
  Company Number: None

PATIENT
  Age: 27 Year
  Sex: Female

DRUGS (6)
  1. PROGESTERONE [Suspect]
     Active Substance: PROGESTERONE
     Dosage: 600 MG
     Route: 065
     Dates: start: 20240522
  2. ORGALUTRAN [Suspect]
     Active Substance: GANIRELIX ACETATE
     Indication: Assisted reproductive technology
     Dosage: 0.25 MILLIGRAM, QD
     Route: 065
     Dates: start: 20240515, end: 20240518
  3. CHORIOGONADOTROPIN ALFA [Suspect]
     Active Substance: CHORIOGONADOTROPIN ALFA
     Indication: Assisted reproductive technology
     Dosage: 30 MICROGRAM, ONCE (TOTAL)
     Route: 065
     Dates: start: 20240521, end: 20240521
  4. CHORIOGONADOTROPIN ALFA [Suspect]
     Active Substance: CHORIOGONADOTROPIN ALFA
     Dosage: 30 MICROGRAM, ONCE (TOTAL)
     Route: 065
     Dates: start: 20240527, end: 20240527
  5. FOLLITROPIN DELTA [Suspect]
     Active Substance: FOLLITROPIN DELTA
     Indication: Assisted reproductive technology
     Dosage: 5.66 MICROGRAM, QD
     Route: 065
     Dates: start: 20240510, end: 20240514
  6. FOLLITROPIN DELTA [Suspect]
     Active Substance: FOLLITROPIN DELTA
     Dosage: 4 MICROGRAM, QD
     Route: 065
     Dates: start: 20240515, end: 20240518

REACTIONS (3)
  - Ascites [Recovered/Resolved]
  - Ovarian hyperstimulation syndrome [Recovered/Resolved]
  - Ovarian enlargement [Recovered/Resolved]

NARRATIVE: CASE EVENT DATE: 20240527
